FAERS Safety Report 5515627-3 (Version None)
Quarter: 2007Q4

REPORT INFORMATION
  Report Type: 
  Country: None (occurrence: None)
  Receive Date: 20071113
  Receipt Date: 20070712
  Transmission Date: 20080405
  Serious: No
  Sender: FDA-Public Use
  Company Number: A0663682A

PATIENT
  Age: 73 Year
  Sex: Female

DRUGS (10)
  1. COREG [Suspect]
     Indication: CARDIAC FAILURE
     Dosage: 6.25MG PER DAY
     Route: 048
     Dates: start: 20070301, end: 20070601
  2. NEURONTIN [Concomitant]
  3. PAXIL [Concomitant]
  4. PRILOSEC [Concomitant]
  5. ATIVAN [Concomitant]
  6. LIPITOR [Concomitant]
  7. UNKNOWN MEDICATION [Concomitant]
  8. ATACAND [Concomitant]
  9. ASPIRIN [Concomitant]
  10. METOPROLOL TARTRATE [Concomitant]

REACTIONS (1)
  - WEIGHT INCREASED [None]
